FAERS Safety Report 18937663 (Version 1)
Quarter: 2021Q1

REPORT INFORMATION
  Report Type: Spontaneous
  Country: GB (occurrence: GB)
  Receive Date: 20210224
  Receipt Date: 20210224
  Transmission Date: 20210420
  Serious: Yes (Other)
  Sender: FDA-Public Use
  Company Number: GB-MYLANLABS-2021M1011067

PATIENT
  Age: 60 Year
  Sex: Male
  Weight: 103 kg

DRUGS (1)
  1. CAPECITABINE. [Suspect]
     Active Substance: CAPECITABINE
     Indication: COLORECTAL ADENOCARCINOMA
     Dosage: 2150 MILLIGRAM, BID
     Route: 048
     Dates: start: 20210211, end: 20210215

REACTIONS (1)
  - Arteriospasm coronary [Recovered/Resolved]

NARRATIVE: CASE EVENT DATE: 20210215
